FAERS Safety Report 5592114-8 (Version None)
Quarter: 2008Q1

REPORT INFORMATION
  Report Type: 
  Country: None (occurrence: None)
  Receive Date: 20080115
  Receipt Date: 20070227
  Transmission Date: 20080703
  Serious: No
  Sender: FDA-Public Use
  Company Number: US-ABBOTT-07P-163-0406435-00

PATIENT
  Sex: Male
  Weight: 858 kg

DRUGS (1)
  1. ADVICOR [Suspect]
     Indication: BLOOD CHOLESTEROL INCREASED
     Route: 048
     Dates: start: 20060601

REACTIONS (3)
  - BACK PAIN [None]
  - DIZZINESS POSTURAL [None]
  - PROSTATIC DISORDER [None]
